FAERS Safety Report 6013778-0 (Version None)
Quarter: 2008Q4

REPORT INFORMATION
  Report Type: 
  Country: None (occurrence: None)
  Receive Date: 20081218
  Receipt Date: 20081218
  Transmission Date: 20090506
  Serious: Yes (Death, Hospitalization)
  Sender: FDA-Public Use
  Company Number: None

PATIENT
  Sex: Male
  Weight: 116 kg

DRUGS (8)
  1. ABRAXANE [Suspect]
     Indication: GASTRIC CANCER
     Dosage: 200 MG D1,D8, D15/CYCLE Q42
     Dates: start: 20081120, end: 20081204
  2. VANDETANIB [Suspect]
     Indication: GASTRIC CANCER
     Dosage: 200 MG QD X 28 DAYS Q47
     Dates: start: 20081120, end: 20081212
  3. METFORMIN HCL [Concomitant]
  4. EFFEXOR [Concomitant]
  5. ACIPHEX [Concomitant]
  6. AMBIEN [Concomitant]
  7. VICODIN [Concomitant]
  8. MEGACE [Concomitant]

REACTIONS (5)
  - DECREASED APPETITE [None]
  - DISEASE PROGRESSION [None]
  - HAEMATEMESIS [None]
  - RETCHING [None]
  - WEIGHT DECREASED [None]
